FAERS Safety Report 5709395-X (Version None)
Quarter: 2008Q2

REPORT INFORMATION
  Report Type: 
  Country: None (occurrence: None)
  Receive Date: 20080417
  Receipt Date: 20080411
  Transmission Date: 20081010
  Serious: No
  Sender: FDA-Public Use
  Company Number: 08H-163-0314150-00

PATIENT
  Age: 38 Year
  Sex: Female
  Weight: 135.1719 kg

DRUGS (2)
  1. HEPARIN SODIUM [Suspect]
     Indication: THROMBOSIS
     Dosage: 10000 UNIT, TWICE A DAY,  SUBCUTANEOUS
     Route: 058
     Dates: start: 20080403, end: 20080411
  2. PRENATAL VITAMINS (PRENATAL VITAMINS) [Concomitant]

REACTIONS (1)
  - INJECTION SITE IRRITATION [None]
